FAERS Safety Report 14518302 (Version 2)
Quarter: 2020Q3

REPORT INFORMATION
  Report Type: Spontaneous
  Country: US (occurrence: US)
  Receive Date: 20180212
  Receipt Date: 20200930
  Transmission Date: 20201102
  Serious: No
  Sender: FDA-Public Use
  Company Number: US-PFIZER INC-2018059656

PATIENT
  Age: 72 Year
  Sex: Male

DRUGS (2)
  1. LYRICA [Suspect]
     Active Substance: PREGABALIN
     Indication: DIABETIC NEUROPATHY
  2. LYRICA [Suspect]
     Active Substance: PREGABALIN
     Indication: TYPE 2 DIABETES MELLITUS
     Dosage: 75 MG, 2X/DAY, (1 CAPSULE TWICE A DAY 90 DAYS)
     Route: 048

REACTIONS (5)
  - Back pain [Unknown]
  - Arthralgia [Unknown]
  - Osteoarthritis [Unknown]
  - Muscle spasms [Unknown]
  - Joint effusion [Unknown]
